FAERS Safety Report 19122575 (Version 1)
Quarter: 2021Q2

REPORT INFORMATION
  Report Type: Spontaneous
  Country: US (occurrence: US)
  Receive Date: 20210412
  Receipt Date: 20210412
  Transmission Date: 20210717
  Serious: No
  Sender: FDA-Public Use
  Company Number: US-STANDARD HOMEOPATHIC COMPANY-2109194

PATIENT
  Age: 18 Month
  Sex: Female

DRUGS (1)
  1. HYLAND^S BABY COMFORT CHAMOMILLA [Suspect]
     Active Substance: HOMEOPATHICS
     Indication: INSOMNIA
     Route: 048

REACTIONS (1)
  - Seizure [None]

NARRATIVE: CASE EVENT DATE: 20210325
